FAERS Safety Report 7986712-1 (Version None)
Quarter: 2011Q4

REPORT INFORMATION
  Report Type: 
  Country: None (occurrence: None)
  Receive Date: 20111216
  Receipt Date: 20110817
  Transmission Date: 20120403
  Serious: Yes (Hospitalization)
  Sender: FDA-Public Use
  Company Number: US-BRISTOL-MYERS SQUIBB COMPANY-15980410

PATIENT
  Age: 60 Year
  Sex: Female

DRUGS (6)
  1. ABILIFY [Suspect]
     Indication: DEPRESSION
     Dosage: DOSAGE: 2MG SPILT IN TO 1MG.
     Dates: start: 20110720
  2. LORAZEPAM [Concomitant]
  3. SIMVASTATIN [Concomitant]
  4. METOPROLOL TARTRATE [Concomitant]
  5. METFORMIN HCL [Concomitant]
  6. PROZAC [Concomitant]

REACTIONS (2)
  - DYSPNOEA [None]
  - DIZZINESS [None]
